FAERS Safety Report 5853299-9 (Version None)
Quarter: 2008Q3

REPORT INFORMATION
  Report Type: 
  Country: None (occurrence: None)
  Receive Date: 20080821
  Receipt Date: 20080813
  Transmission Date: 20090109
  Serious: Yes (Hospitalization)
  Sender: FDA-Public Use
  Company Number: ES-PFIZER INC-2008067258

PATIENT
  Age: 76 Year
  Sex: Female

DRUGS (6)
  1. BESITRAN [Suspect]
     Indication: DEPRESSIVE SYMPTOM
     Dosage: TEXT:100 MG DAILY EVERY DAY TDD:100 MG
     Route: 048
     Dates: start: 20060101, end: 20080126
  2. DIGOXIN [Concomitant]
     Route: 048
  3. ORFIDAL [Concomitant]
     Route: 048
  4. RABEPRAZOLE SODIUM [Concomitant]
     Route: 048
  5. PREVENCOR [Concomitant]
     Route: 048
  6. SEGURIL [Concomitant]
     Route: 048

REACTIONS (1)
  - SUBARACHNOID HAEMORRHAGE [None]
